FAERS Safety Report 21682518 (Version 1)
Quarter: 2022Q4

REPORT INFORMATION
  Report Type: Spontaneous
  Country: US (occurrence: US)
  Receive Date: 20221205
  Receipt Date: 20221205
  Transmission Date: 20230112
  Serious: Yes (Other)
  Sender: FDA-Public Use
  Company Number: US-PFIZER INC-PV202200116070

PATIENT
  Sex: Female

DRUGS (1)
  1. XELJANZ XR [Suspect]
     Active Substance: TOFACITINIB CITRATE
     Indication: Rheumatoid arthritis
     Dosage: 11 MG, 1X/DAY
     Route: 048
     Dates: start: 2020

REACTIONS (7)
  - Rheumatoid arthritis [Unknown]
  - Arthropathy [Unknown]
  - Product dose omission issue [Unknown]
  - Pain in extremity [Unknown]
  - Impaired quality of life [Unknown]
  - Fibromyalgia [Unknown]
  - Osteoporosis [Unknown]
